FAERS Safety Report 5398425-3 (Version None)
Quarter: 2007Q3

REPORT INFORMATION
  Report Type: 
  Country: None (occurrence: None)
  Receive Date: 20070726
  Receipt Date: 20070307
  Transmission Date: 20080115
  Serious: No
  Sender: FDA-Public Use
  Company Number: US-AMGEN-KDL214204

PATIENT
  Sex: Male
  Weight: 78.5 kg

DRUGS (3)
  1. PROCRIT [Suspect]
     Indication: ANAEMIA
     Route: 058
     Dates: start: 20070131, end: 20070221
  2. HUMALOG [Concomitant]
  3. UNSPECIFIED ANTIDIABETIC AGENT [Concomitant]

REACTIONS (5)
  - FLUID RETENTION [None]
  - HEADACHE [None]
  - HYPERTENSION [None]
  - SWELLING [None]
  - VOMITING [None]
